FAERS Safety Report 10427148 (Version 1)
Quarter: 2014Q3

REPORT INFORMATION
  Report Type: Spontaneous
  Country: US (occurrence: US)
  Receive Date: 20140903
  Receipt Date: 20140903
  Transmission Date: 20150326
  Serious: No
  Sender: FDA-Public Use
  Company Number: US-009507513-1408USA015462

PATIENT
  Sex: Male

DRUGS (1)
  1. JANUMET XR [Suspect]
     Active Substance: METFORMIN HYDROCHLORIDE\SITAGLIPTIN PHOSPHATE
     Dosage: DOSE:50/1000 MG, UNK
     Route: 048
     Dates: start: 201401

REACTIONS (2)
  - Fatigue [Unknown]
  - Tenderness [Unknown]

NARRATIVE: CASE EVENT DATE: 201402
